FAERS Safety Report 5494658-6 (Version None)
Quarter: 2007Q4

REPORT INFORMATION
  Report Type: 
  Country: None (occurrence: None)
  Receive Date: 20071023
  Receipt Date: 20071023
  Transmission Date: 20080405
  Serious: Yes (Other)
  Sender: FDA-Public Use
  Company Number: None

PATIENT
  Age: 50 Year
  Sex: Female
  Weight: 48.9885 kg

DRUGS (1)
  1. ACTONEL [Suspect]
     Indication: BONE DENSITY DECREASED
     Dosage: 1 ACTONEL PILL WEEKLY PO
     Route: 048
     Dates: start: 20070907, end: 20071019

REACTIONS (5)
  - ARTHRALGIA [None]
  - ARTHRITIS [None]
  - IMMOBILE [None]
  - JOINT STIFFNESS [None]
  - PAIN IN EXTREMITY [None]
